FAERS Safety Report 23417709 (Version 1)
Quarter: 2024Q1

REPORT INFORMATION
  Report Type: Spontaneous
  Country: US (occurrence: US)
  Receive Date: 20240118
  Receipt Date: 20240118
  Transmission Date: 20240410
  Serious: No
  Sender: FDA-Public Use
  Company Number: US-SK LIFE SCIENCE, INC-SKPVG-2023-001283

PATIENT

DRUGS (3)
  1. XCOPRI [Suspect]
     Active Substance: CENOBAMATE
     Indication: Seizure
     Dosage: UNK
     Route: 065
     Dates: start: 202008
  2. XCOPRI [Suspect]
     Active Substance: CENOBAMATE
     Dosage: 150 MILLIGRAM, TWICE DAILY (TOTAL DAILY DOSE OF 300 MG)
     Route: 065
  3. XCOPRI [Suspect]
     Active Substance: CENOBAMATE
     Dosage: 150 MILLIGRAM, QD
     Route: 065

REACTIONS (4)
  - Seizure [Not Recovered/Not Resolved]
  - Bronchitis [Not Recovered/Not Resolved]
  - Intentional underdose [Not Recovered/Not Resolved]
  - Illness [Not Recovered/Not Resolved]
